FAERS Safety Report 24572646 (Version 1)
Quarter: 2024Q4

REPORT INFORMATION
  Report Type: Spontaneous
  Country: US (occurrence: None)
  Receive Date: 20241101
  Receipt Date: 20241101
  Transmission Date: 20250115
  Serious: No
  Sender: Public
  Company Number: None

PATIENT
  Age: 60 Year
  Sex: Male

DRUGS (1)
  1. NUZYRA [Suspect]
     Active Substance: OMADACYCLINE
     Indication: Skin infection
     Dosage: 300 MG DAILY ORAL
     Route: 048
     Dates: start: 20241012, end: 20241029

REACTIONS (3)
  - Blister [None]
  - Pain [None]
  - Hyperaesthesia [None]
